FAERS Safety Report 7524313-X (Version None)
Quarter: 2011Q2

REPORT INFORMATION
  Report Type: 
  Country: None (occurrence: None)
  Receive Date: 20110606
  Receipt Date: 20110531
  Transmission Date: 20111010
  Serious: No
  Sender: FDA-Public Use
  Company Number: US-BIOGENIDEC-2011BI020169

PATIENT
  Sex: Female

DRUGS (3)
  1. TYSABRI [Suspect]
     Indication: MULTIPLE SCLEROSIS
     Route: 042
     Dates: start: 20081001
  2. AVONEX [Concomitant]
     Indication: MULTIPLE SCLEROSIS
     Route: 030
     Dates: end: 20080101
  3. AVONEX [Concomitant]
     Route: 030
     Dates: start: 19991101

REACTIONS (5)
  - BALANCE DISORDER [None]
  - BONE LOSS [None]
  - CYSTITIS [None]
  - TOOTH INFECTION [None]
  - COORDINATION ABNORMAL [None]
